FAERS Safety Report 25564480 (Version 1)
Quarter: 2025Q3

REPORT INFORMATION
  Report Type: Spontaneous
  Country: AR (occurrence: AR)
  Receive Date: 20250716
  Receipt Date: 20250716
  Transmission Date: 20251021
  Serious: Yes (Death, Life-Threatening, Hospitalization)
  Sender: ACCORD
  Company Number: AR-MLMSERVICE-20250630-PI560540-00271-1

PATIENT
  Age: 54 Year
  Sex: Female

DRUGS (4)
  1. METHOTREXATE [Suspect]
     Active Substance: METHOTREXATE
     Indication: Dermatomyositis
  2. METHYLPREDNISOLONE [Suspect]
     Active Substance: METHYLPREDNISOLONE
     Indication: Dermatomyositis
  3. FOLIC ACID [Concomitant]
     Active Substance: FOLIC ACID
  4. METHYLPREDNISOLONE [Suspect]
     Active Substance: METHYLPREDNISOLONE
     Indication: Dermatomyositis
     Dosage: INCREASED TO 60 MG/DAY

REACTIONS (6)
  - Haemodynamic instability [Fatal]
  - Thrombosis [Fatal]
  - Necrotising fasciitis [Fatal]
  - Extrapulmonary tuberculosis [Fatal]
  - Muscle disorder [Fatal]
  - Multiple organ dysfunction syndrome [Fatal]
